FAERS Safety Report 9912107 (Version 4)
Quarter: 2014Q2

REPORT INFORMATION
  Report Type: Report from Study
  Country: CA (occurrence: CA)
  Receive Date: 20140219
  Receipt Date: 20140505
  Transmission Date: 20141212
  Serious: Yes (Hospitalization)
  Sender: FDA-Public Use
  Company Number: CA-BRISTOL-MYERS SQUIBB COMPANY-19030063

PATIENT
  Age: 53 Year
  Sex: Female

DRUGS (8)
  1. ORENCIA [Suspect]
     Indication: RHEUMATOID ARTHRITIS
     Dosage: 1 DF =750 NO UNITS?BATCH:3A80545,3H64998,3F74896;EXP:SEP2015, MAY16?DOSE:750MG Q4 WKS?3A80545
     Route: 042
     Dates: start: 20130128
  2. TRACLEER [Concomitant]
  3. BOSENTAN [Concomitant]
  4. CIALIS [Concomitant]
  5. PREDNISONE [Concomitant]
  6. OXYCODONE [Concomitant]
  7. ZOPICLONE [Concomitant]
  8. OLANZAPINE [Concomitant]

REACTIONS (3)
  - Pulmonary hypertension [Unknown]
  - Pneumonia [Not Recovered/Not Resolved]
  - Drug ineffective [Unknown]
